FAERS Safety Report 9249623 (Version 2)
Quarter: 2013Q2

REPORT INFORMATION
  Report Type: Spontaneous
  Country: AU (occurrence: AU)
  Receive Date: 20130423
  Receipt Date: 20130528
  Transmission Date: 20140414
  Serious: Yes (Death, Other)
  Sender: FDA-Public Use
  Company Number: AU-B.I. PHARMACEUTICALS,INC./RIDGEFIELD-2013-AU-00485AU

PATIENT
  Sex: Male
  Weight: 130 kg

DRUGS (12)
  1. PRADAXA [Suspect]
     Indication: ATRIAL FIBRILLATION
     Dosage: 300 MG
     Dates: start: 20110708, end: 20120618
  2. PRADAXA [Suspect]
     Dosage: 220 MG
     Dates: start: 20120618
  3. CARDIZEM CD [Concomitant]
     Dosage: 240 MG
  4. LANOXIN [Concomitant]
     Dosage: 250 MCG
  5. AVAPRO HCT [Concomitant]
     Dosage: 300/12.5 MG DAILY
  6. LASIX [Concomitant]
     Dosage: 40 MG
  7. SLOW K [Concomitant]
     Dosage: ONCE DAILY
  8. SOMAC [Concomitant]
  9. SPIRIVA [Concomitant]
  10. SYMBICORT [Concomitant]
  11. VENTOLIN [Concomitant]
  12. ZYLOPRIM [Concomitant]

REACTIONS (2)
  - Myocardial infarction [Fatal]
  - Renal impairment [Unknown]
